FAERS Safety Report 20330176 (Version 1)
Quarter: 2022Q1

REPORT INFORMATION
  Report Type: Report from Study
  Country: IE (occurrence: IE)
  Receive Date: 20220113
  Receipt Date: 20220113
  Transmission Date: 20220423
  Serious: Yes (Hospitalization)
  Sender: FDA-Public Use
  Company Number: IE-AstraZeneca-2022A015127

PATIENT
  Sex: Female

DRUGS (5)
  1. SYNAGIS [Suspect]
     Active Substance: PALIVIZUMAB
     Indication: Bronchopulmonary dysplasia
     Dosage: 15.0MG/KG UNKNOWN
     Route: 030
     Dates: start: 20201110, end: 2020
  2. SYNAGIS [Suspect]
     Active Substance: PALIVIZUMAB
     Indication: Bronchopulmonary dysplasia
     Dosage: 15.0MG/KG UNKNOWN
     Route: 030
     Dates: start: 20201208, end: 20210330
  3. SYNAGIS [Suspect]
     Active Substance: PALIVIZUMAB
     Indication: Bronchopulmonary dysplasia
     Dosage: 15.0MG/KG UNKNOWN
     Route: 030
     Dates: start: 20211021, end: 2021
  4. SYNAGIS [Suspect]
     Active Substance: PALIVIZUMAB
     Indication: Bronchopulmonary dysplasia
     Dosage: UNKNOWN
     Route: 030
     Dates: start: 20211118, end: 2021
  5. SYNAGIS [Suspect]
     Active Substance: PALIVIZUMAB
     Indication: Bronchopulmonary dysplasia
     Dosage: UNKNOWN
     Route: 030
     Dates: start: 20211216

REACTIONS (1)
  - Aspiration [Recovered/Resolved]
